FAERS Safety Report 20238092 (Version 1)
Quarter: 2021Q4

REPORT INFORMATION
  Report Type: Spontaneous
  Country: BR (occurrence: BR)
  Receive Date: 20211228
  Receipt Date: 20211228
  Transmission Date: 20220303
  Serious: Yes (Other)
  Sender: FDA-Public Use
  Company Number: BR-TEVA-2021-BR-1993725

PATIENT
  Age: 7 Decade
  Sex: Male

DRUGS (5)
  1. IRINOTECAN [Suspect]
     Active Substance: IRINOTECAN
     Indication: Rectal cancer
     Dosage: WITH CETUXIMAB
     Route: 065
     Dates: end: 201506
  2. IRINOTECAN [Suspect]
     Active Substance: IRINOTECAN
     Indication: Metastases to liver
     Dosage: WITH PANITUMUMAB, AS FOURTH LINE PALLIATIVE CHEMOTHERAPY
     Route: 065
     Dates: start: 201611, end: 201702
  3. CETUXIMAB [Suspect]
     Active Substance: CETUXIMAB
     Indication: Rectal cancer
     Dosage: WITH IRINOTECAN
     Route: 065
     Dates: start: 201506
  4. CETUXIMAB [Suspect]
     Active Substance: CETUXIMAB
     Indication: Metastases to liver
  5. PANITUMUMAB [Suspect]
     Active Substance: PANITUMUMAB
     Indication: Metastases to liver
     Dosage: WITH IRINOTECAN, AS FOURTH LINE PALLIATIVE CHEMOTHERAPY
     Route: 065
     Dates: start: 201611, end: 201702

REACTIONS (1)
  - Drug resistance [Unknown]
